FAERS Safety Report 13669355 (Version 2)
Quarter: 2017Q3

REPORT INFORMATION
  Report Type: Report from Study
  Country: AT (occurrence: AT)
  Receive Date: 20170620
  Receipt Date: 20170706
  Transmission Date: 20171127
  Serious: Yes (Hospitalization, Other)
  Sender: FDA-Public Use
  Company Number: PHHY2016AT113652

PATIENT
  Sex: Female
  Weight: 66 kg

DRUGS (7)
  1. EFFECTIN [Concomitant]
     Active Substance: VENLAFAXINE HYDROCHLORIDE
     Indication: PRODUCT USED FOR UNKNOWN INDICATION
     Dosage: 1 DF  (2-0-0-0-0)
     Route: 065
  2. EXEMESTAN [Concomitant]
     Active Substance: EXEMESTANE
     Indication: PRODUCT USED FOR UNKNOWN INDICATION
     Dosage: 25 MG, UNK
     Route: 065
     Dates: start: 20160722
  3. PARACODIN [Concomitant]
     Active Substance: DIHYDROCODEINE BITARTRATE
     Indication: PRODUCT USED FOR UNKNOWN INDICATION
     Dosage: 1 DF, TID (1-1-1-0)
     Route: 065
     Dates: end: 20170606
  4. AFINITOR [Suspect]
     Active Substance: EVEROLIMUS
     Indication: BREAST CANCER
     Dosage: 5 MG, UNK
     Route: 065
     Dates: start: 20160722, end: 20170517
  5. LAMICTAL [Concomitant]
     Active Substance: LAMOTRIGINE
     Indication: PRODUCT USED FOR UNKNOWN INDICATION
     Dosage: 1 DF, QD
     Route: 065
  6. APREDNISLON [Concomitant]
     Active Substance: PREDNISOLONE
     Indication: PRODUCT USED FOR UNKNOWN INDICATION
     Dosage: 1 DF, QD (1-0-0-0)
     Route: 065
     Dates: start: 20170518, end: 20170620
  7. NEXIUM 24HR [Concomitant]
     Active Substance: ESOMEPRAZOLE MAGNESIUM
     Indication: PRODUCT USED FOR UNKNOWN INDICATION
     Dosage: 1 DF, QD (0-0-1-0)
     Route: 065

REACTIONS (19)
  - Cough [Recovering/Resolving]
  - Dyspnoea [Not Recovered/Not Resolved]
  - Asthenia [Recovered/Resolved]
  - Stomatitis [Recovered/Resolved]
  - Mucosal inflammation [Recovering/Resolving]
  - Lymphadenopathy [Unknown]
  - Bone disorder [Unknown]
  - Liver disorder [Unknown]
  - Hypertension [Not Recovered/Not Resolved]
  - Nausea [Recovered/Resolved]
  - Sneezing [Unknown]
  - Recurrent cancer [Unknown]
  - Pulmonary artery dilatation [Recovered/Resolved]
  - General physical health deterioration [Unknown]
  - Dysphonia [Not Recovered/Not Resolved]
  - Pneumonitis [Recovered/Resolved]
  - Pericardial effusion [Recovered/Resolved]
  - Pulmonary mass [Unknown]
  - Fatigue [Recovered/Resolved]

NARRATIVE: CASE EVENT DATE: 2016
